FAERS Safety Report 21504022 (Version 2)
Quarter: 2022Q4

REPORT INFORMATION
  Report Type: Report from Study
  Country: CA (occurrence: CA)
  Receive Date: 20221025
  Receipt Date: 20221111
  Transmission Date: 20230113
  Serious: Yes (Hospitalization)
  Sender: FDA-Public Use
  Company Number: CA-BRISTOL-MYERS SQUIBB COMPANY-2022-124947

PATIENT
  Age: 57 Year
  Sex: Male
  Weight: 67.8 kg

DRUGS (6)
  1. NIVOLUMAB [Suspect]
     Active Substance: NIVOLUMAB
     Indication: Renal cancer metastatic
     Route: 042
     Dates: start: 20220428, end: 20220428
  2. NIVOLUMAB [Suspect]
     Active Substance: NIVOLUMAB
     Route: 042
     Dates: end: 20220707
  3. IPILIMUMAB [Suspect]
     Active Substance: IPILIMUMAB
     Indication: Renal cancer metastatic
     Route: 042
     Dates: start: 20220428, end: 20220428
  4. PANTOPRAZOLE [Concomitant]
     Active Substance: PANTOPRAZOLE
     Indication: Gastrooesophageal reflux disease
     Route: 065
     Dates: start: 20220128
  5. ONDANSETRON [Concomitant]
     Active Substance: ONDANSETRON
     Indication: Nausea
     Route: 065
     Dates: start: 20220128
  6. SUTENT [Concomitant]
     Active Substance: SUNITINIB MALATE
     Indication: Metastatic renal cell carcinoma
     Route: 065
     Dates: start: 20220818, end: 20220909

REACTIONS (2)
  - Gastrointestinal disorder [Unknown]
  - Cancer pain [Unknown]

NARRATIVE: CASE EVENT DATE: 20220721
